FAERS Safety Report 22178720 (Version 2)
Quarter: 2023Q2

REPORT INFORMATION
  Report Type: Spontaneous
  Country: US (occurrence: US)
  Receive Date: 20230405
  Receipt Date: 20230509
  Transmission Date: 20230721
  Serious: Yes (Hospitalization)
  Sender: FDA-Public Use
  Company Number: US-BRISTOL-MYERS SQUIBB COMPANY-2023-046388

PATIENT
  Age: 79 Year
  Sex: Female

DRUGS (1)
  1. REVLIMID [Suspect]
     Active Substance: LENALIDOMIDE
     Indication: Plasma cell myeloma
     Dosage: TAKE 1 CAPSULE BY MOUTH WHOLE WITH WATER W/ OR W/O FOOD AT THE SAME TIME EACH DAY FOR 21 DAYSTHEN 7
     Route: 048
     Dates: start: 20230302, end: 20230325

REACTIONS (5)
  - Pyrexia [Unknown]
  - Asthenia [Unknown]
  - Blood pressure increased [Unknown]
  - Diarrhoea [Unknown]
  - White blood cell count decreased [Unknown]
